FAERS Safety Report 4578806-8 (Version None)
Quarter: 2005Q1

REPORT INFORMATION
  Report Type: 
  Country: None (occurrence: None)
  Receive Date: 20050207
  Receipt Date: 20050207
  Transmission Date: 20050727
  Serious: Yes (Life-Threatening, Hospitalization)
  Sender: FDA-Public Use
  Company Number: None

PATIENT
  Age: 59 Year
  Sex: Female
  Weight: 78.9259 kg

DRUGS (2)
  1. EFFEXOR XR [Suspect]
     Dosage: 1 DOSE PER DAY
     Dates: start: 19980101, end: 20041112
  2. TRAZODONE 500 MG MFG-BARR [Suspect]
     Dosage: 1 DOSE PER DAY
     Dates: start: 20040615, end: 20041112

REACTIONS (4)
  - MALAISE [None]
  - MENTAL DISORDER [None]
  - PARADOXICAL DRUG REACTION [None]
  - SUICIDE ATTEMPT [None]
